FAERS Safety Report 18814369 (Version 1)
Quarter: 2021Q1

REPORT INFORMATION
  Report Type: Other
  Country: VN (occurrence: VN)
  Receive Date: 20210201
  Receipt Date: 20210201
  Transmission Date: 20210419
  Serious: Yes (Other)
  Sender: FDA-Public Use
  Company Number: VN-ROCHE-2753891

PATIENT

DRUGS (3)
  1. CARBOPLATIN. [Suspect]
     Active Substance: CARBOPLATIN
     Indication: LUNG ADENOCARCINOMA STAGE IV
     Route: 065
     Dates: start: 201601, end: 202004
  2. BEVACIZUMAB. [Suspect]
     Active Substance: BEVACIZUMAB
     Indication: LUNG ADENOCARCINOMA STAGE IV
     Route: 065
     Dates: start: 201601, end: 202004
  3. PACLITAXEL. [Suspect]
     Active Substance: PACLITAXEL
     Indication: LUNG ADENOCARCINOMA STAGE IV
     Route: 065
     Dates: start: 201601, end: 202004

REACTIONS (17)
  - Blood urea increased [Unknown]
  - Hypersensitivity [Unknown]
  - Alopecia [Unknown]
  - Nausea [Unknown]
  - Neuropathy peripheral [Unknown]
  - Myalgia [Unknown]
  - Haemoglobin decreased [Unknown]
  - Anaemia [Unknown]
  - Hepatic enzyme increased [Unknown]
  - Arthralgia [Unknown]
  - Thrombocytopenia [Unknown]
  - Vomiting [Unknown]
  - Neutropenia [Unknown]
  - Neurotoxicity [Unknown]
  - Hypertension [Unknown]
  - Agranulocytosis [Unknown]
  - Blood creatinine increased [Unknown]
